FAERS Safety Report 12745989 (Version 1)
Quarter: 2016Q3

REPORT INFORMATION
  Report Type: Spontaneous
  Country: US (occurrence: US)
  Receive Date: 20160906
  Receipt Date: 20160906
  Transmission Date: 20161109
  Serious: Yes (Hospitalization)
  Sender: FDA-Public Use
  Company Number: None

PATIENT
  Age: 55 Year
  Sex: Female
  Weight: 97.7 kg

DRUGS (14)
  1. ZEPATIER [Suspect]
     Active Substance: ELBASVIR\GRAZOPREVIR
     Indication: HEPATITIS C
     Route: 048
     Dates: start: 20160524
  2. FOLIC ACID. [Concomitant]
     Active Substance: FOLIC ACID
  3. PANTOPRAZOLE [Concomitant]
     Active Substance: PANTOPRAZOLE SODIUM
  4. POLYETHYLENE GLYCOL [Concomitant]
     Active Substance: POLYETHYLENE GLYCOLS
  5. MULTIVITAMIN WITH MINERALS [Concomitant]
     Active Substance: MINERALS\VITAMINS
  6. CLONIDINE. [Concomitant]
     Active Substance: CLONIDINE
  7. INSULIN GLARGINE [Concomitant]
     Active Substance: INSULIN GLARGINE
  8. HEPARIN [Concomitant]
     Active Substance: HEPARIN SODIUM
  9. PROMETHAZINE [Concomitant]
     Active Substance: PROMETHAZINE\PROMETHAZINE HYDROCHLORIDE
  10. VITAMIN E [Concomitant]
     Active Substance: .ALPHA.-TOCOPHEROL
  11. METOPROLOL. [Concomitant]
     Active Substance: METOPROLOL
  12. CALCIUM CARBONATE. [Concomitant]
     Active Substance: CALCIUM CARBONATE
  13. COD LIVER OIL [Concomitant]
     Active Substance: COD LIVER OIL
  14. FUROSEMIDE. [Concomitant]
     Active Substance: FUROSEMIDE

REACTIONS (10)
  - Cholelithiasis [None]
  - Tooth abscess [None]
  - Peptic ulcer [None]
  - Therapy cessation [None]
  - Hypotension [None]
  - Vertigo [None]
  - Cardiac failure congestive [None]
  - Hyperkalaemia [None]
  - Coronary artery disease [None]
  - Ultrasound scan abnormal [None]

NARRATIVE: CASE EVENT DATE: 20160623
